FAERS Safety Report 6440609-7 (Version None)
Quarter: 2009Q4

REPORT INFORMATION
  Report Type: 
  Country: None (occurrence: None)
  Receive Date: 20091112
  Receipt Date: 20091112
  Transmission Date: 20100525
  Serious: Yes (Other)
  Sender: FDA-Public Use
  Company Number: None

PATIENT
  Age: 71 Year
  Sex: Male
  Weight: 81.1939 kg

DRUGS (4)
  1. FINASTERIDE [Suspect]
     Indication: POLLAKIURIA
     Dosage: 5 MG TABLET 1 DAY MOUTH
     Route: 048
     Dates: start: 19090801
  2. FINASTERIDE [Suspect]
     Indication: URINARY TRACT DISORDER
     Dosage: 5 MG TABLET 1 DAY MOUTH
     Route: 048
     Dates: start: 19090801
  3. FINASTERIDE [Suspect]
     Indication: POLLAKIURIA
     Dosage: 5 MG TABLET 1 DAY MOUTH
     Route: 048
     Dates: start: 19090901
  4. FINASTERIDE [Suspect]
     Indication: URINARY TRACT DISORDER
     Dosage: 5 MG TABLET 1 DAY MOUTH
     Route: 048
     Dates: start: 19090901

REACTIONS (4)
  - DYSURIA [None]
  - ERECTILE DYSFUNCTION [None]
  - HYPOAESTHESIA [None]
  - LOSS OF LIBIDO [None]
